FAERS Safety Report 21738727 (Version 1)
Quarter: 2022Q4

REPORT INFORMATION
  Report Type: Report from Study
  Country: US (occurrence: US)
  Receive Date: 20221216
  Receipt Date: 20221216
  Transmission Date: 20230112
  Serious: No
  Sender: FDA-Public Use
  Company Number: US-ABBVIE-4192257

PATIENT
  Sex: Female

DRUGS (1)
  1. SYNTHROID [Suspect]
     Active Substance: LEVOTHYROXINE SODIUM
     Indication: Product used for unknown indication
     Route: 048

REACTIONS (8)
  - Myalgia [Unknown]
  - Drug ineffective [Unknown]
  - Fatigue [Unknown]
  - Thyroid disorder [Unknown]
  - Malabsorption [Unknown]
  - Insomnia [Unknown]
  - Constipation [Unknown]
  - Condition aggravated [Unknown]
